FAERS Safety Report 6802492-7 (Version None)
Quarter: 2010Q2

REPORT INFORMATION
  Report Type: 
  Country: None (occurrence: None)
  Receive Date: 20100628
  Receipt Date: 20100616
  Transmission Date: 20101027
  Serious: Yes (Other)
  Sender: FDA-Public Use
  Company Number: US-BAYER-201025662NA

PATIENT
  Sex: Female

DRUGS (1)
  1. MIRENA [Suspect]
     Indication: DRUG USE FOR UNKNOWN INDICATION
     Dosage: FREQUENCY CONTINUOUS
     Route: 015
     Dates: start: 20090601, end: 20100616

REACTIONS (8)
  - ABDOMINAL PAIN [None]
  - ACNE [None]
  - ALOPECIA [None]
  - ANXIETY [None]
  - COITAL BLEEDING [None]
  - HEADACHE [None]
  - MOOD SWINGS [None]
  - VAGINAL HAEMORRHAGE [None]
